FAERS Safety Report 16885744 (Version 1)
Quarter: 2019Q4

REPORT INFORMATION
  Report Type: Spontaneous
  Country: US (occurrence: US)
  Receive Date: 20190809
  Receipt Date: 20190809
  Transmission Date: 20200122
  Serious: No
  Sender: FDA-Public Use
  Company Number: None

PATIENT
  Age: 76 Year
  Sex: Female

DRUGS (1)
  1. AMBRISENTAN 1OMG TABLETS 30/BO: 10MG [Suspect]
     Active Substance: AMBRISENTAN
     Indication: CONGENITAL CARDIOVASCULAR ANOMALY
     Route: 048
     Dates: start: 201807

REACTIONS (8)
  - Pneumonia [None]
  - Immunosuppression [None]
  - Septic shock [None]
  - Emphysema [None]
  - Interstitial lung disease [None]
  - Decreased appetite [None]
  - Acute respiratory failure [None]
  - Vaginal haemorrhage [None]

NARRATIVE: CASE EVENT DATE: 20190730
